FAERS Safety Report 5632648-0 (Version None)
Quarter: 2008Q1

REPORT INFORMATION
  Report Type: 
  Country: None (occurrence: None)
  Receive Date: 20080220
  Receipt Date: 20080208
  Transmission Date: 20080703
  Serious: Yes (Other)
  Sender: FDA-Public Use
  Company Number: GB-PFIZER INC-2008013098

PATIENT
  Age: 38 Year
  Sex: Female

DRUGS (7)
  1. CHANTIX [Suspect]
     Indication: SMOKING CESSATION THERAPY
     Route: 048
     Dates: start: 20080111, end: 20080118
  2. SIMETHICONE [Concomitant]
     Indication: DIARRHOEA
     Dates: start: 20080116
  3. CO-CODAMOL [Concomitant]
     Indication: ANALGESIA
     Route: 048
  4. DEPO-PROVERA [Concomitant]
     Indication: CONTRACEPTION
  5. SUMATRIPTAN SUCCINATE [Concomitant]
  6. LOPERAMIDE HCL [Concomitant]
     Indication: DIARRHOEA
  7. SPASMONAL [Concomitant]

REACTIONS (4)
  - DIARRHOEA [None]
  - GASTROOESOPHAGEAL REFLUX DISEASE [None]
  - IRRITABLE BOWEL SYNDROME [None]
  - NAUSEA [None]
